FAERS Safety Report 9032703 (Version 4)
Quarter: 2013Q3

REPORT INFORMATION
  Report Type: Spontaneous
  Country: US (occurrence: US)
  Receive Date: 20130128
  Receipt Date: 20130820
  Transmission Date: 20140515
  Serious: Yes (Death)
  Sender: FDA-Public Use
  Company Number: US-BIOGENIDEC-2013BI006193

PATIENT
  Sex: Female

DRUGS (6)
  1. TYSABRI [Suspect]
     Indication: MULTIPLE SCLEROSIS
     Route: 042
     Dates: start: 20081216, end: 20121025
  2. ALBUTEROL [Concomitant]
  3. NORCO [Concomitant]
  4. OXYGEN [Concomitant]
  5. AVELOX [Concomitant]
  6. SPIRONOLACTONE [Concomitant]

REACTIONS (4)
  - Death [Fatal]
  - Pneumonia [Unknown]
  - Asthma [Unknown]
  - Cardiac failure congestive [Unknown]
